FAERS Safety Report 18697672 (Version 3)
Quarter: 2021Q1

REPORT INFORMATION
  Report Type: Report from Study
  Country: FR (occurrence: FR)
  Receive Date: 20210104
  Receipt Date: 20210201
  Transmission Date: 20210419
  Serious: Yes (Hospitalization, Other)
  Sender: FDA-Public Use
  Company Number: FR-CELGENEUS-FRA-20201208393

PATIENT
  Age: 64 Year
  Sex: Male
  Weight: 86 kg

DRUGS (8)
  1. POMALIDOMIDE [Suspect]
     Active Substance: POMALIDOMIDE
     Indication: PLASMA CELL MYELOMA
     Dosage: 4 MILLIGRAM
     Route: 048
     Dates: start: 20201123, end: 20201228
  2. ISATUXIMAB [Suspect]
     Active Substance: ISATUXIMAB
     Dosage: 920 MILLIGRAM
     Route: 065
     Dates: start: 20210104
  3. DEXAMETHASONE. [Suspect]
     Active Substance: DEXAMETHASONE
     Dosage: 40 MILLIGRAM
     Route: 048
     Dates: start: 20210104
  4. CARFILZOMIB [Suspect]
     Active Substance: CARFILZOMIB
     Dosage: 55.35 MILLIGRAM
     Route: 065
     Dates: start: 20210104
  5. ISATUXIMAB [Suspect]
     Active Substance: ISATUXIMAB
     Indication: PLASMA CELL MYELOMA
     Dosage: 920 MILLIGRAM
     Route: 065
     Dates: start: 20201123, end: 20201228
  6. DEXAMETHASONE. [Suspect]
     Active Substance: DEXAMETHASONE
     Indication: PLASMA CELL MYELOMA
     Dosage: 40 MILLIGRAM
     Route: 048
     Dates: start: 20201123, end: 20201128
  7. CARFILZOMIB [Suspect]
     Active Substance: CARFILZOMIB
     Indication: PLASMA CELL MYELOMA
     Dosage: 55.35 MILLIGRAM
     Route: 065
     Dates: start: 20201123, end: 20201228
  8. ELIQUIS [Concomitant]
     Active Substance: APIXABAN
     Indication: ANTICOAGULANT THERAPY
     Route: 065
     Dates: start: 20201123

REACTIONS (1)
  - Transient ischaemic attack [Recovered/Resolved]

NARRATIVE: CASE EVENT DATE: 20201228
